FAERS Safety Report 4371972-9 (Version None)
Quarter: 2004Q2

REPORT INFORMATION
  Report Type: 
  Country: None (occurrence: None)
  Receive Date: 20040603
  Receipt Date: 20040603
  Transmission Date: 20050107
  Serious: Yes (Hospitalization)
  Sender: FDA-Public Use
  Company Number: None

PATIENT
  Age: 59 Year
  Sex: Male
  Weight: 71.6683 kg

DRUGS (19)
  1. TAXOL [Suspect]
     Indication: NON-SMALL CELL LUNG CANCER
     Dosage: 340 MG Q 3 WEEKS INTRAVENOUS
     Route: 042
     Dates: start: 20031216, end: 20040218
  2. CARBOPLATIN [Suspect]
     Indication: NON-SMALL CELL LUNG CANCER
     Dosage: 790 Q 3 WEEKS INTRAVENOUS
     Route: 042
     Dates: start: 20031216, end: 20040218
  3. ETHAMBUTOL HCL [Concomitant]
  4. PYRAZINAMIDE [Concomitant]
  5. ISONAZID [Concomitant]
  6. VITAMIN B6 [Concomitant]
  7. PYRIDOXINE [Concomitant]
  8. ADVAIR DISKUS 100/50 [Concomitant]
  9. -SALMETEROL-FLUTICASONE [Concomitant]
  10. VENTOLIN [Concomitant]
  11. XANAX [Concomitant]
  12. COMPAZINE [Concomitant]
  13. OXYIR [Concomitant]
  14. WELLBUTRIN [Concomitant]
  15. ALBUTEROL [Concomitant]
  16. ALPRAZOLAM [Concomitant]
  17. PROCHLORPERAZINE MALEATE [Concomitant]
  18. OXYCODONE HCL [Concomitant]
  19. BUPROPION HCL [Concomitant]

REACTIONS (1)
  - CLOSTRIDIUM COLITIS [None]
